FAERS Safety Report 15075192 (Version 1)
Quarter: 2018Q2

REPORT INFORMATION
  Report Type: Report from Study
  Country: US (occurrence: US)
  Receive Date: 20180627
  Receipt Date: 20180627
  Transmission Date: 20180711
  Serious: No
  Sender: FDA-Public Use
  Company Number: US-SAOL THERAPEUTICS-2018SAO00072

PATIENT
  Sex: Male

DRUGS (16)
  1. COMPOUNDED BACLOFEN [Suspect]
     Active Substance: BACLOFEN
     Dosage: 207.30 ?G, \DAY - MAX
     Route: 037
     Dates: end: 20171025
  2. DILAUDID [Suspect]
     Active Substance: HYDROMORPHONE HYDROCHLORIDE
     Dosage: 4.146 MG, \DAY - MAX
     Route: 037
     Dates: end: 20171025
  3. DILAUDID [Suspect]
     Active Substance: HYDROMORPHONE HYDROCHLORIDE
     Dosage: 3.2005 MG, \DAY - MAX
     Route: 037
     Dates: start: 20171025
  4. BUPIVACAINE. [Suspect]
     Active Substance: BUPIVACAINE
     Dosage: 18.776 MG, \DAY
     Route: 037
     Dates: end: 20171025
  5. DILAUDID [Suspect]
     Active Substance: HYDROMORPHONE HYDROCHLORIDE
     Dosage: 1.7519 MG, \DAY
     Route: 037
     Dates: start: 20171025
  6. COMPOUNDED BACLOFEN [Suspect]
     Active Substance: BACLOFEN
     Dosage: 87.59 ?G, \DAY
     Route: 037
     Dates: start: 20171025
  7. BUPIVACAINE. [Suspect]
     Active Substance: BUPIVACAINE
     Dosage: 24.004 MG, \DAY
     Route: 037
     Dates: start: 20171025
  8. COMPOUNDED BACLOFEN [Suspect]
     Active Substance: BACLOFEN
     Dosage: 125.17 ?G, \DAY
     Route: 037
     Dates: end: 20171025
  9. BUPIVACAINE. [Suspect]
     Active Substance: BUPIVACAINE
     Dosage: 31.095 MG, \DAY - MAX
     Route: 037
     Dates: end: 20171025
  10. CLONIDINE. [Suspect]
     Active Substance: CLONIDINE
     Dosage: 207.30 ?G, \DAY - MAX
     Route: 037
     Dates: end: 20171025
  11. CLONIDINE. [Suspect]
     Active Substance: CLONIDINE
     Dosage: 160.03 ?G, \DAY - MAX
     Route: 037
     Dates: start: 20171025
  12. DILAUDID [Suspect]
     Active Substance: HYDROMORPHONE HYDROCHLORIDE
     Dosage: 2.503 MG, \DAY
     Route: 037
     Dates: end: 20171025
  13. CLONIDINE. [Suspect]
     Active Substance: CLONIDINE
     Dosage: 125.17 ?G, \DAY
     Route: 037
     Dates: end: 20171025
  14. CLONIDINE. [Suspect]
     Active Substance: CLONIDINE
     Dosage: 87.59 ?G, \DAY
     Route: 037
     Dates: start: 20171025
  15. COMPOUNDED BACLOFEN [Suspect]
     Active Substance: BACLOFEN
     Dosage: 160.03 ?G, \DAY - MAX
     Route: 037
     Dates: start: 20171025
  16. BUPIVACAINE. [Suspect]
     Active Substance: BUPIVACAINE
     Dosage: 13.139 MG, \DAY
     Route: 037
     Dates: start: 20171025

REACTIONS (4)
  - Urinary incontinence [Recovered/Resolved]
  - Sedation [Recovered/Resolved]
  - Vomiting [Recovered/Resolved]
  - Fall [Recovered/Resolved]

NARRATIVE: CASE EVENT DATE: 20171025
